FAERS Safety Report 4895802-1 (Version None)
Quarter: 2006Q1

REPORT INFORMATION
  Report Type: 
  Country: None (occurrence: None)
  Receive Date: 20060125
  Receipt Date: 20060117
  Transmission Date: 20060701
  Serious: Yes (Disabling)
  Sender: FDA-Public Use
  Company Number: GBWYE289710JAN06

PATIENT
  Age: 64 Year
  Sex: Male

DRUGS (5)
  1. EFFEXOR XR [Suspect]
     Indication: DEPRESSION
     Dosage: 75 MG 1X PER 1 DAY
     Route: 048
     Dates: start: 20051001, end: 20060101
  2. OLANZAPINE [Concomitant]
  3. LITHIUM CARBONATE [Concomitant]
  4. THYROXIN T3        (LEVOTHYROXIEN SODIUM/LIOTHYRONINE) [Concomitant]
  5. FLUOXETINE [Concomitant]

REACTIONS (4)
  - CONDITION AGGRAVATED [None]
  - FALL [None]
  - MEDICATION ERROR [None]
  - TREATMENT NONCOMPLIANCE [None]
